FAERS Safety Report 25069351 (Version 1)
Quarter: 2025Q1

REPORT INFORMATION
  Report Type: Spontaneous
  Country: US (occurrence: None)
  Receive Date: 20250312
  Receipt Date: 20250312
  Transmission Date: 20250409
  Serious: Yes (Disabling, Other)
  Sender: FDA-CTU
  Company Number: None

PATIENT
  Age: 59 Year
  Sex: Female
  Weight: 84.82 kg

DRUGS (15)
  1. FYCOMPA [Suspect]
     Active Substance: PERAMPANEL
     Indication: Seizure
     Dosage: 30 TABLETS 1 DAILY BY MOUTH
     Route: 048
     Dates: start: 20241213, end: 20250202
  2. CARBAMAZEPINE ER 400 MG TABLET 1 DAILY 2 X 5 [Concomitant]
  3. LEVETIRACETAM 500MG TABLET 2 DAILY 2 X 5 [Concomitant]
  4. ESOMEPRAZOLE MAGNESIUM 40MG DR CAPS DAILY [Concomitant]
  5. ATORVASTATIN 20MG TABLETS 1 DAILY [Concomitant]
  6. FAMOTIDINE 20MG TABLET 1 DAILY [Concomitant]
  7. TRINTELLIX 5MG TB (WAS BRINTELLIX) 1 DAILY [Concomitant]
  8. VALACYCLOVIR 1GM TABLET 2X DAILY FOR 2 DOSES (3 OUT OF BREAKS) [Concomitant]
  9. MUCINEXX 600 MG (12 HR RELASE) 1 DAILY [Concomitant]
  10. ALLERGY RELEASE [Concomitant]
  11. CETIRIZINE HYDROCHLORIDE [Concomitant]
     Active Substance: CETIRIZINE HYDROCHLORIDE
  12. FOLIC ACID 1000MG 1 DAILY [Concomitant]
  13. CITRACEL (CALCIUM CITRATE) +D3 [Concomitant]
  14. COMPLETE MULTI-VITAMIN WOMEN +50 [Concomitant]
  15. B12 5000 MCG [Concomitant]

REACTIONS (10)
  - Weight increased [None]
  - Anxiety [None]
  - Social avoidant behaviour [None]
  - Anger [None]
  - Aggression [None]
  - Drooling [None]
  - Back pain [None]
  - Amnesia [None]
  - Musculoskeletal disorder [None]
  - Personality change [None]
